FAERS Safety Report 21158762 (Version 2)
Quarter: 2022Q3

REPORT INFORMATION
  Report Type: Report from Study
  Country: CA (occurrence: CA)
  Receive Date: 20220802
  Receipt Date: 20220818
  Transmission Date: 20221026
  Serious: Yes (Hospitalization, Other)
  Sender: FDA-Public Use
  Company Number: CA-ABBVIE-22K-028-4484286-00

PATIENT
  Age: 69 Year
  Sex: Female
  Weight: 95.8 kg

DRUGS (2)
  1. SKYRIZI [Suspect]
     Active Substance: RISANKIZUMAB-RZAA
     Indication: Psoriasis
     Route: 058
     Dates: start: 20200723
  2. OXYGEN [Concomitant]
     Active Substance: OXYGEN
     Indication: Product used for unknown indication
     Dosage: AS NEEDED

REACTIONS (29)
  - Cholecystectomy [Unknown]
  - Dehydration [Recovered/Resolved]
  - Pulmonary oedema [Recovering/Resolving]
  - Oedema peripheral [Recovered/Resolved]
  - Oedema [Recovered/Resolved]
  - Diarrhoea [Recovered/Resolved]
  - Psoriasis [Not Recovered/Not Resolved]
  - Adnexa uteri mass [Unknown]
  - Cardiac failure [Unknown]
  - Hepatic vein dilatation [Unknown]
  - Hepatic steatosis [Unknown]
  - Mass [Unknown]
  - Renal cyst [Unknown]
  - Nephrocalcinosis [Unknown]
  - Nephrolithiasis [Unknown]
  - Aortic arteriosclerosis [Unknown]
  - Endometrial thickening [Unknown]
  - Hypokalaemia [Recovered/Resolved]
  - Blood potassium decreased [Recovered/Resolved]
  - Neutrophil count increased [Unknown]
  - Lymphocyte count decreased [Unknown]
  - Monocyte count increased [Unknown]
  - Eosinophil count decreased [Unknown]
  - Blood glucose increased [Unknown]
  - Bacterial test positive [Unknown]
  - Red blood cell count decreased [Unknown]
  - Haematocrit increased [Unknown]
  - Urine albumin/creatinine ratio increased [Unknown]
  - Dehydration [Recovered/Resolved]

NARRATIVE: CASE EVENT DATE: 20210916
